FAERS Safety Report 4323656-0 (Version None)
Quarter: 2004Q1

REPORT INFORMATION
  Report Type: 
  Country: None (occurrence: None)
  Receive Date: 20040323
  Receipt Date: 20040309
  Transmission Date: 20041129
  Serious: Yes (Hospitalization)
  Sender: FDA-Public Use
  Company Number: A117434

PATIENT
  Age: 10 Year
  Sex: Male
  Weight: 37.195 kg

DRUGS (5)
  1. ZYRTEC [Suspect]
     Indication: RHINITIS ALLERGIC
     Dosage: 10 MG (DAILY)
     Dates: start: 20001127, end: 20010620
  2. DILANTIN [Suspect]
     Indication: CONVULSION
     Dosage: 150 MG (DAILY)
     Dates: start: 20010101, end: 20010101
  3. CARBAMAZEPINE [Suspect]
     Indication: CONVULSION
     Dates: start: 20010214, end: 20010101
  4. VALPROATE SODIUM [Suspect]
     Indication: CONVULSION
     Dates: start: 20010101, end: 20010101
  5. TOPIRAMATE [Concomitant]

REACTIONS (5)
  - CONVULSION [None]
  - ELECTROENCEPHALOGRAM ABNORMAL [None]
  - HALLUCINATION [None]
  - LYMPHADENOPATHY [None]
  - RASH PRURITIC [None]
